FAERS Safety Report 14082546 (Version 1)
Quarter: 2017Q4

REPORT INFORMATION
  Report Type: Spontaneous
  Country: SE (occurrence: SE)
  Receive Date: 20171013
  Receipt Date: 20171013
  Transmission Date: 20180321
  Serious: Yes (Other)
  Sender: FDA-Public Use
  Company Number: SE-TEVA-813893ACC

PATIENT
  Age: 18 Year
  Sex: Female

DRUGS (3)
  1. ALVEDON [Concomitant]
     Active Substance: ACETAMINOPHEN
  2. NAPROXEN. [Concomitant]
     Active Substance: NAPROXEN
  3. CLEOSENSA [Suspect]
     Active Substance: DROSPIRENONE\ETHINYL ESTRADIOL
     Indication: DYSMENORRHOEA
     Route: 048
     Dates: start: 201707

REACTIONS (1)
  - Panniculitis [Unknown]

NARRATIVE: CASE EVENT DATE: 2017
